FAERS Safety Report 10460643 (Version 2)
Quarter: 2014Q3

REPORT INFORMATION
  Report Type: Spontaneous
  Country: US (occurrence: US)
  Receive Date: 20140918
  Receipt Date: 20140918
  Transmission Date: 20150326
  Serious: No
  Sender: FDA-Public Use
  Company Number: US-TEVA-434396USA

PATIENT
  Age: 32 Year
  Sex: Female

DRUGS (2)
  1. FLUOXETINE [Suspect]
     Active Substance: FLUOXETINE\FLUOXETINE HYDROCHLORIDE
     Dosage: 60 MILLIGRAM DAILY; TAKEN AT NIGHT FOR ONE WEEK
     Dates: start: 20130801
  2. FLUOXETINE [Suspect]
     Active Substance: FLUOXETINE\FLUOXETINE HYDROCHLORIDE

REACTIONS (2)
  - Abnormal dreams [Recovering/Resolving]
  - Abnormal dreams [Recovered/Resolved with Sequelae]

NARRATIVE: CASE EVENT DATE: 20130808
